FAERS Safety Report 23460885 (Version 2)
Quarter: 2024Q2

REPORT INFORMATION
  Report Type: Spontaneous
  Country: US (occurrence: None)
  Receive Date: 20240131
  Receipt Date: 20240401
  Transmission Date: 20240716
  Serious: Yes (Other)
  Sender: FDA-Public Use
  Company Number: US-ROCHE-3498631

PATIENT
  Age: 41 Year
  Sex: Female
  Weight: 152 kg

DRUGS (19)
  1. ENSPRYNG [Suspect]
     Active Substance: SATRALIZUMAB-MWGE
     Indication: Neuromyelitis optica spectrum disorder
     Dosage: 120 MG/ML
     Route: 058
     Dates: start: 202309
  2. ENSPRYNG [Suspect]
     Active Substance: SATRALIZUMAB-MWGE
  3. ENSPRYNG [Suspect]
     Active Substance: SATRALIZUMAB-MWGE
  4. ENSPRYNG [Suspect]
     Active Substance: SATRALIZUMAB-MWGE
  5. VILAZODONE [Concomitant]
     Active Substance: VILAZODONE
     Route: 048
  6. FINASTERIDE [Concomitant]
     Active Substance: FINASTERIDE
     Route: 048
  7. HERBALS\WITHANIA SOMNIFERA ROOT [Concomitant]
     Active Substance: HERBALS\WITHANIA SOMNIFERA ROOT
     Route: 048
  8. ZINC ACETATE [Concomitant]
     Active Substance: ZINC ACETATE
     Route: 048
  9. PROGESTERONE [Concomitant]
     Active Substance: PROGESTERONE
     Route: 048
  10. MAGNESIUM [Concomitant]
     Active Substance: MAGNESIUM
     Route: 048
  11. SPIRONOLACTONE [Concomitant]
     Active Substance: SPIRONOLACTONE
  12. VITAMIN D2 [Concomitant]
     Active Substance: ERGOCALCIFEROL
     Dosage: 1250 MCG (50000 UNIT)
     Route: 048
  13. PRAZOSIN [Concomitant]
     Active Substance: PRAZOSIN
     Route: 048
  14. VIVITROL [Concomitant]
     Active Substance: NALTREXONE
  15. BACLOFEN [Concomitant]
     Active Substance: BACLOFEN
  16. SOLU-MEDROL [Concomitant]
     Active Substance: METHYLPREDNISOLONE SODIUM SUCCINATE
     Route: 042
  17. OMEPRAZOLE [Concomitant]
     Active Substance: OMEPRAZOLE
  18. MODAFINIL [Concomitant]
     Active Substance: MODAFINIL
     Route: 048
  19. TURMERIC [Concomitant]
     Active Substance: TURMERIC
     Route: 048

REACTIONS (1)
  - Neuromyelitis optica spectrum disorder [Unknown]

NARRATIVE: CASE EVENT DATE: 20231224
